FAERS Safety Report 9378180 (Version 3)
Quarter: 2013Q3

REPORT INFORMATION
  Report Type: Spontaneous
  Country: JP (occurrence: JP)
  Receive Date: 20130701
  Receipt Date: 20130722
  Transmission Date: 20140515
  Serious: Yes (Hospitalization)
  Sender: FDA-Public Use
  Company Number: JP-GLAXOSMITHKLINE-B0903960A

PATIENT
  Age: 76 Year
  Sex: Female
  Weight: 60 kg

DRUGS (13)
  1. VALTREX [Suspect]
     Indication: HERPES ZOSTER
     Dosage: 1000MG THREE TIMES PER DAY
     Route: 048
     Dates: start: 20130510, end: 20130515
  2. ADOAIR [Concomitant]
     Indication: ASTHMA
     Dosage: 250MCG TWICE PER DAY
     Route: 055
  3. ARASENA-A [Concomitant]
     Indication: BLISTER
     Route: 061
     Dates: start: 20130510
  4. FEBURIC [Concomitant]
     Dosage: 10MG PER DAY
     Route: 048
     Dates: start: 20130510
  5. METHYCOBAL [Concomitant]
     Dosage: 1000MCG TWICE PER DAY
     Route: 048
     Dates: start: 20130513
  6. NEUROTROPIN [Concomitant]
     Dosage: 2IUAX TWICE PER DAY
     Route: 048
     Dates: start: 20130513
  7. LYRICA [Concomitant]
     Dosage: 75MG TWICE PER DAY
     Route: 048
     Dates: start: 20130513
  8. LANSOPRAZOLE [Concomitant]
     Dosage: 15MG PER DAY
     Route: 048
  9. ALDACTONE A [Concomitant]
     Dosage: 25MG PER DAY
     Route: 048
  10. FERO-GRADUMET [Concomitant]
     Dosage: 105MG PER DAY
     Route: 048
  11. GANATON [Concomitant]
     Route: 048
  12. CELECOX [Concomitant]
     Route: 048
  13. REBAMIPIDE [Concomitant]
     Route: 048

REACTIONS (6)
  - Renal failure acute [Recovering/Resolving]
  - Encephalopathy [Recovered/Resolved]
  - Altered state of consciousness [Recovered/Resolved]
  - Vomiting [Recovering/Resolving]
  - Hallucination [Recovered/Resolved]
  - Dizziness [Recovering/Resolving]
